FAERS Safety Report 6974228 (Version 2)
Quarter: 2012Q4

REPORT INFORMATION
  Report Type: 
  Country: NZ (occurrence: NZ)
  Receive Date: 20090421
  Receipt Date: 20121128
  Transmission Date: 20130627
  Serious: Yes (Death)
  Sender: FDA-Public Use
  Company Number: PHHY2009NZ14696

PATIENT
  Age: 77 Year
  Sex: Male

DRUGS (8)
  1. CLOZARIL [Suspect]
     Indication: SCHIZOPHRENIA
     Dosage: 37.5 mg, UNK
     Route: 048
     Dates: start: 20071106, end: 20090412
  2. CLOZARIL [Suspect]
     Indication: PSYCHOTIC DISORDER
  3. MADOPAR 62.5 [Concomitant]
     Indication: PARKINSON^S DISEASE
     Dosage: 080 U
     Route: 048
     Dates: end: 20090414
  4. MADOPAR HBS [Concomitant]
     Indication: PARKINSON^S DISEASE
     Dosage: UNK 1/1 , QID
     Route: 048
     Dates: end: 20090414
  5. PAROXETINE [Concomitant]
     Indication: DEPRESSION
     Dosage: 1.5 UKN, (mane)
     Route: 048
     Dates: end: 20090412
  6. ASPIRIN [Concomitant]
     Indication: CEREBROVASCULAR ACCIDENT
     Dosage: (1 mane)
     Route: 048
     Dates: end: 20090412
  7. AMOXICILLIN\CLAVULANATE POTASSIUM [Concomitant]
     Indication: LOWER RESPIRATORY TRACT INFECTION
     Dosage: 20 ml, QID
     Dates: start: 20090412
  8. PARACETAMOL [Concomitant]
     Indication: LOWER RESPIRATORY TRACT INFECTION
     Dosage: 20 ml, QID
     Route: 048
     Dates: start: 20090413

REACTIONS (2)
  - Pneumonia [Fatal]
  - Lower respiratory tract infection [Fatal]
